FAERS Safety Report 25195175 (Version 2)
Quarter: 2025Q2

REPORT INFORMATION
  Report Type: Spontaneous
  Country: US (occurrence: US)
  Receive Date: 20250415
  Receipt Date: 20250513
  Transmission Date: 20250716
  Serious: No
  Sender: SANOFI AVENTIS
  Company Number: US-SA-2025SA102408

PATIENT
  Age: 46 Year
  Sex: Female
  Weight: 77.27 kg

DRUGS (28)
  1. DUPIXENT [Suspect]
     Active Substance: DUPILUMAB
     Indication: Neurodermatitis
     Dosage: 300 MG, QOW
     Route: 058
     Dates: start: 20250207, end: 2025
  2. DUPIXENT [Suspect]
     Active Substance: DUPILUMAB
     Indication: Asthma
     Dosage: 300 MG, QOW
     Route: 058
     Dates: start: 20250404
  3. BENZONATATE [Concomitant]
     Active Substance: BENZONATATE
  4. PREDNISONE [Concomitant]
     Active Substance: PREDNISONE
  5. AMOXICILLIN [Concomitant]
     Active Substance: AMOXICILLIN
  6. MACROBID [Concomitant]
     Active Substance: NITROFURANTOIN\NITROFURANTOIN MONOHYDRATE
  7. FAMOTIDINE [Concomitant]
     Active Substance: FAMOTIDINE
  8. IBUPROFEN [Concomitant]
     Active Substance: IBUPROFEN
  9. MUCINEX [Concomitant]
     Active Substance: GUAIFENESIN
  10. SPIRIVA RESPIMAT [Concomitant]
     Active Substance: TIOTROPIUM BROMIDE
  11. SYMBICORT [Concomitant]
     Active Substance: BUDESONIDE\FORMOTEROL FUMARATE DIHYDRATE
  12. FLUTICASONE PROPIONATE [Concomitant]
     Active Substance: FLUTICASONE PROPIONATE
  13. ZYRTEC [Concomitant]
     Active Substance: CETIRIZINE HYDROCHLORIDE
  14. BENADRYL [Concomitant]
     Active Substance: DIPHENHYDRAMINE HYDROCHLORIDE
  15. VITAMIN C [Concomitant]
     Active Substance: ASCORBIC ACID
  16. TORSEMIDE [Concomitant]
     Active Substance: TORSEMIDE
  17. ZOLOFT [Concomitant]
     Active Substance: SERTRALINE HYDROCHLORIDE
  18. AMPHETAMINE SULFATE [Concomitant]
     Active Substance: AMPHETAMINE SULFATE
  19. MORPHINE SULFATE [Concomitant]
     Active Substance: MORPHINE SULFATE
  20. BACLOFEN [Concomitant]
     Active Substance: BACLOFEN
  21. DILTIAZEM HYDROCHLORIDE [Concomitant]
     Active Substance: DILTIAZEM HYDROCHLORIDE
  22. SPIRONOLACTONE [Concomitant]
     Active Substance: SPIRONOLACTONE
  23. POTASSIUM CHLORIDE [Concomitant]
     Active Substance: POTASSIUM CHLORIDE
  24. DIGESTIVE ADVANTAGE PROBIOTIC [Concomitant]
  25. CRANBERRY [Concomitant]
     Active Substance: CRANBERRY
  26. NARCAN [Concomitant]
     Active Substance: NALOXONE HYDROCHLORIDE
  27. EPINEPHRINE [EPINEPHRINE HYDROCHLORIDE] [Concomitant]
  28. UMZU REDWOOD [Concomitant]

REACTIONS (7)
  - Ear discomfort [Recovered/Resolved]
  - Feeling abnormal [Recovered/Resolved]
  - Dysphonia [Unknown]
  - Speech disorder [Recovered/Resolved]
  - Disturbance in attention [Recovered/Resolved]
  - Headache [Recovered/Resolved]
  - Dizziness [Recovered/Resolved]

NARRATIVE: CASE EVENT DATE: 20250101
